FAERS Safety Report 9406931 (Version 1)
Quarter: 2013Q3

REPORT INFORMATION
  Report Type: Spontaneous
  Country: US (occurrence: US)
  Receive Date: 20130718
  Receipt Date: 20130718
  Transmission Date: 20140515
  Serious: No
  Sender: FDA-Public Use
  Company Number: US-PFIZER INC-2013207924

PATIENT
  Age: 64 Year
  Sex: Female

DRUGS (12)
  1. CELEBREX [Suspect]
     Dosage: UNK
  2. BEXTRA [Suspect]
     Dosage: UNK
  3. CARVEDILOL [Suspect]
     Dosage: UNK
  4. DICLOFENAC EPOLAMINE [Suspect]
     Dosage: UNK
  5. LISINOPRIL [Suspect]
     Dosage: UNK
  6. LYRICA [Concomitant]
     Dosage: 100 MG, 2X/DAY
  7. ASPIRIN [Concomitant]
     Dosage: 81 MG, 1X/DAY
  8. OMEPRAZOLE [Concomitant]
     Dosage: 20 MG, 2X/DAY
  9. SIMVASTATIN [Concomitant]
     Dosage: 20 MG, QHS (EVERY EVENING/BEDTIME)
  10. BENAZEPRIL HCL [Concomitant]
     Dosage: 10 MG, 2X/DAY
  11. TOPROL XL [Concomitant]
     Dosage: 50 MG, 1X/DAY
  12. WARFARIN [Concomitant]
     Dosage: 5 MG, 1X/DAY

REACTIONS (1)
  - Drug hypersensitivity [Unknown]
